FAERS Safety Report 5334789-4 (Version None)
Quarter: 2007Q2

REPORT INFORMATION
  Report Type: 
  Country: None (occurrence: None)
  Receive Date: 20070525
  Receipt Date: 20070517
  Transmission Date: 20071010
  Serious: Yes (Other)
  Sender: FDA-Public Use
  Company Number: PHFR2007GB01634

PATIENT
  Age: 58 Year
  Sex: Female

DRUGS (4)
  1. ESTRADERM [Suspect]
     Dosage: UNK, UNK
     Route: 062
  2. CETIRIZINE HCL [Concomitant]
     Dosage: 10 MG, QD
     Route: 065
  3. LANSOPRAZOLE [Concomitant]
     Route: 065
  4. NASONEX [Concomitant]
     Route: 065

REACTIONS (1)
  - CEREBROVASCULAR ACCIDENT [None]
